FAERS Safety Report 7271058-X (Version None)
Quarter: 2011Q1

REPORT INFORMATION
  Report Type: 
  Country: None (occurrence: None)
  Receive Date: 20110202
  Receipt Date: 20110128
  Transmission Date: 20110831
  Serious: Yes (Hospitalization)
  Sender: FDA-Public Use
  Company Number: US-PFIZER INC-2011021605

PATIENT
  Age: 77 Year
  Sex: Female
  Weight: 61.7 kg

DRUGS (12)
  1. WARFARIN [Concomitant]
  2. AMBIEN [Concomitant]
  3. ARFORMOTEROL INHALED [Suspect]
     Indication: WHEEZING
  4. CALCIUM [Concomitant]
  5. ARFORMOTEROL INHALED [Suspect]
     Indication: COUGH
     Dosage: 15 UG/2ML
     Route: 055
     Dates: start: 20101207, end: 20101207
  6. SALBUTAMOL [Concomitant]
  7. SYNTHROID [Concomitant]
  8. VICODIN [Concomitant]
  9. BACTRIM [Suspect]
     Dosage: 1X, UNK
     Dates: start: 20101207, end: 20101207
  10. VERAPAMIL [Concomitant]
  11. LANOXIN [Concomitant]
  12. SOLU-MEDROL [Suspect]
     Dosage: 1X, UNK
     Dates: start: 20101207, end: 20101207

REACTIONS (9)
  - BLOOD GLUCOSE INCREASED [None]
  - TREMOR [None]
  - OXYGEN SATURATION DECREASED [None]
  - MEMORY IMPAIRMENT [None]
  - PNEUMONIA [None]
  - HEART RATE INCREASED [None]
  - HYPERTENSION [None]
  - HYPOTENSION [None]
  - PYREXIA [None]
